FAERS Safety Report 16342100 (Version 1)
Quarter: 2019Q2

REPORT INFORMATION
  Report Type: Spontaneous
  Country: US (occurrence: US)
  Receive Date: 20190416
  Receipt Date: 20190416
  Transmission Date: 20190711
  Serious: Yes (Other)
  Sender: FDA-Public Use
  Company Number: None

PATIENT
  Age: 27 Year
  Sex: Female
  Weight: 105.87 kg

DRUGS (1)
  1. BUPRENORPHINE/NALAXONE [Suspect]
     Active Substance: BUPRENORPHINE HYDROCHLORIDE\NALOXONE HYDROCHLORIDE
     Route: 060
     Dates: start: 20190109, end: 20190305

REACTIONS (4)
  - Nausea [None]
  - Vomiting [None]
  - Migraine [None]
  - Headache [None]

NARRATIVE: CASE EVENT DATE: 20190206
